FAERS Safety Report 23463521 (Version 1)
Quarter: 2024Q1

REPORT INFORMATION
  Report Type: Report from Study
  Country: MX (occurrence: MX)
  Receive Date: 20240131
  Receipt Date: 20240131
  Transmission Date: 20240410
  Serious: Yes (Hospitalization)
  Sender: FDA-Public Use
  Company Number: MX-ABBVIE-5614072

PATIENT
  Age: 34 Year
  Sex: Female
  Weight: 60 kg

DRUGS (4)
  1. HUMIRA [Suspect]
     Active Substance: ADALIMUMAB
     Indication: Psoriatic arthropathy
     Dosage: FORM STRENGTH: 40 MG
     Route: 058
     Dates: start: 20240114
  2. HUMIRA [Suspect]
     Active Substance: ADALIMUMAB
     Dosage: FORM STRENGTH: 40 MG
     Route: 058
     Dates: start: 20230227, end: 20231229
  3. ETORICOXIB [Concomitant]
     Active Substance: ETORICOXIB
     Indication: Pain
     Dosage: 90MG
  4. AZULFIDINE [Concomitant]
     Active Substance: SULFASALAZINE
     Indication: Psoriatic arthropathy

REACTIONS (4)
  - Gastric infection [Recovered/Resolved]
  - Immunodeficiency [Recovered/Resolved]
  - Dehydration [Recovered/Resolved]
  - Adverse food reaction [Recovered/Resolved]

NARRATIVE: CASE EVENT DATE: 20240108
